FAERS Safety Report 8132113-5 (Version None)
Quarter: 2012Q1

REPORT INFORMATION
  Report Type: 
  Country: None (occurrence: None)
  Receive Date: 20120213
  Receipt Date: 20120206
  Transmission Date: 20120608
  Serious: Yes (Other)
  Sender: FDA-Public Use
  Company Number: GR-PFIZER INC-2012035950

PATIENT
  Age: 32 Year
  Sex: Female

DRUGS (2)
  1. PANTOPRAZOLE [Suspect]
     Indication: DIAPHRAGMATIC HERNIA
     Dosage: 40 MG, 1X/DAY
     Route: 048
     Dates: start: 20110101
  2. PANTOPRAZOLE [Suspect]
     Indication: GASTROOESOPHAGEAL REFLUX DISEASE
     Dosage: 40 MG, 2X/DAY
     Route: 048
     Dates: start: 20110101

REACTIONS (6)
  - PHARYNGEAL HAEMORRHAGE [None]
  - PHARYNGEAL OEDEMA [None]
  - TONGUE ULCERATION [None]
  - NASAL OEDEMA [None]
  - EPISTAXIS [None]
  - SKIN EXFOLIATION [None]
